FAERS Safety Report 14089184 (Version 2)
Quarter: 2017Q4

REPORT INFORMATION
  Report Type: Spontaneous
  Country: US (occurrence: US)
  Receive Date: 20171013
  Receipt Date: 20171107
  Transmission Date: 20180321
  Serious: No
  Sender: FDA-Public Use
  Company Number: US-TAIHO ONCOLOGY INC-EU-2017-01316

PATIENT
  Age: 68 Year
  Sex: Male

DRUGS (1)
  1. LONSURF [Suspect]
     Active Substance: TIPIRACIL HYDROCHLORIDE\TRIFLURIDINE
     Indication: RECTAL CANCER
     Dosage: 40MG BID START DATE 27FEB2017, CYCLE 21 WAS LAST CYCLE
     Route: 048
     Dates: start: 20161025, end: 20170920

REACTIONS (6)
  - Pyrexia [Recovered/Resolved]
  - Asthenia [Recovered/Resolved]
  - Swelling [Recovered/Resolved]
  - Chills [Recovered/Resolved]
  - Fatigue [Recovered/Resolved]
  - Back pain [Recovered/Resolved]

NARRATIVE: CASE EVENT DATE: 20170920
